FAERS Safety Report 12958561 (Version 1)
Quarter: 2016Q4

REPORT INFORMATION
  Report Type: Spontaneous
  Country: US (occurrence: US)
  Receive Date: 20161121
  Receipt Date: 20161121
  Transmission Date: 20170207
  Serious: No
  Sender: FDA-Public Use
  Company Number: US-HORIZON-ACT-0272-2016

PATIENT
  Age: 71 Year
  Sex: Female

DRUGS (1)
  1. ACTIMMUNE [Suspect]
     Active Substance: INTERFERON GAMMA-1B
     Indication: BREAST CANCER
     Dosage: 50 ?G EVERY OTHER DAY

REACTIONS (2)
  - Off label use [Unknown]
  - Malaise [Unknown]
